FAERS Safety Report 5441078-6 (Version None)
Quarter: 2007Q3

REPORT INFORMATION
  Report Type: 
  Country: None (occurrence: None)
  Receive Date: 20070831
  Receipt Date: 20070820
  Transmission Date: 20080115
  Serious: Yes (Other)
  Sender: FDA-Public Use
  Company Number: US-PFIZER INC-2007046064

PATIENT
  Sex: Male
  Weight: 93.4 kg

DRUGS (4)
  1. CHANTIX [Suspect]
     Indication: EX-SMOKER
     Dates: start: 20070401, end: 20070101
  2. LANTUS [Concomitant]
  3. ENALAPRIL [Concomitant]
  4. ALEVE [Concomitant]

REACTIONS (6)
  - DERMATITIS [None]
  - DRUG HYPERSENSITIVITY [None]
  - HEPATITIS [None]
  - NEPHRITIS [None]
  - SKIN EXFOLIATION [None]
  - SKIN REACTION [None]
